FAERS Safety Report 7784442-2 (Version None)
Quarter: 2011Q3

REPORT INFORMATION
  Report Type: 
  Country: None (occurrence: None)
  Receive Date: 20110928
  Receipt Date: 20110906
  Transmission Date: 20111222
  Serious: Yes (Other)
  Sender: FDA-Public Use
  Company Number: DE-GILEAD-2011-0042633

PATIENT

DRUGS (7)
  1. ASPIRIN [Concomitant]
     Dosage: 1-0-0
     Route: 048
     Dates: start: 20080101
  2. DIGITOXIN TAB [Concomitant]
     Dosage: 0.07, 1/2-0-0
     Route: 048
     Dates: start: 20080101
  3. RANEXA [Suspect]
     Indication: ANGINA PECTORIS
     Route: 048
     Dates: start: 20101001, end: 20110101
  4. METOPROLOL TARTRATE [Suspect]
     Dosage: 95 MG, 1-0-1/2
     Route: 048
     Dates: start: 20080101
  5. MICARDIS HCT [Concomitant]
     Dosage: 80 MG/DIE + 12.5 MG
     Route: 048
     Dates: start: 20080101
  6. SIMVASTATIN [Suspect]
     Dosage: 80MG, 0-0-1/2
     Route: 048
     Dates: start: 20080101
  7. MICARDIS HCT [Concomitant]
     Dosage: 80 MG/DIE + 12.5 MG
     Route: 048
     Dates: start: 20080101

REACTIONS (1)
  - TRANSAMINASES INCREASED [None]
